FAERS Safety Report 18297991 (Version 3)
Quarter: 2020Q3

REPORT INFORMATION
  Report Type: Spontaneous
  Country: US (occurrence: US)
  Receive Date: 20200922
  Receipt Date: 20200928
  Transmission Date: 20201103
  Serious: Yes (Other)
  Sender: FDA-Public Use
  Company Number: US-PFIZER INC-2016580323

PATIENT
  Age: 73 Year
  Sex: Female

DRUGS (27)
  1. LYRICA [Suspect]
     Active Substance: PREGABALIN
     Indication: ESSENTIAL HYPERTENSION
     Dosage: 150 MG, 2X/DAY (1 CAPSULE AT MORNING, 1 CAPSULE AT NIGHT)
     Route: 048
  2. PENTOXIFYLLIN [Concomitant]
     Active Substance: PENTOXIFYLLINE
     Dosage: 400 MG, 1X/DAY (AT MORN)
  3. ISOSORB MONO [Concomitant]
     Active Substance: ISOSORBIDE MONONITRATE
     Dosage: 30 MG, 1X/DAY (AT MORN)
  4. RELION/NOVOLIN [Concomitant]
     Dosage: 46 IU, 1X/DAY (MORNING);
  5. PLAVIX [Concomitant]
     Active Substance: CLOPIDOGREL BISULFATE
     Dosage: 75 MG, 1X/DAY (AT NIGHT)
  6. ZANAFLEX [Concomitant]
     Active Substance: TIZANIDINE HYDROCHLORIDE
     Dosage: 4 MG, 1X/DAY
  7. XALATAN [Concomitant]
     Active Substance: LATANOPROST
     Dosage: 2 DROP, 1X/DAY (1 DROP BOTH EYES AT NIGHT)
     Route: 047
  8. SYNTHROID [Concomitant]
     Active Substance: LEVOTHYROXINE SODIUM
     Dosage: 100 UG, 1X/DAY (AT MORN BEFORE MEALS)
  9. CYMBALTA [Concomitant]
     Active Substance: DULOXETINE HYDROCHLORIDE
     Dosage: 60 MG, 1X/DAY (AT MORN)
  10. METOPROLOL. [Concomitant]
     Active Substance: METOPROLOL
     Dosage: 100 MG, 1X/DAY (AT NIGHT)
  11. HUMALOG [Concomitant]
     Active Substance: INSULIN LISPRO
     Dosage: 1 DF, 3X/DAY (1 SLIDING SCALE DOSE, AFTER MEALS)
  12. TORSEMIDE. [Concomitant]
     Active Substance: TORSEMIDE
     Dosage: 20 MG, 1X/DAY (AT MORN)
  13. AMLODIPINE [Concomitant]
     Active Substance: AMLODIPINE BESYLATE
     Dosage: 10 MG, 1X/DAY ( AT MORN)
  14. NEURONTIN [Concomitant]
     Active Substance: GABAPENTIN
     Dosage: 600 MG, 1X/DAY
  15. FISH OIL [Concomitant]
     Active Substance: FISH OIL
     Dosage: 1000 MG, 1X/DAY (AT NIGHT)
  16. LYRICA [Suspect]
     Active Substance: PREGABALIN
     Indication: FIBROMYALGIA
  17. NORCO [Concomitant]
     Active Substance: ACETAMINOPHEN\HYDROCODONE BITARTRATE
     Dosage: 1 DF, 2X/DAY (1 AT MORN 1 AT NIGHT)
  18. HYDRALAZINE HCL [Concomitant]
     Active Substance: HYDRALAZINE HYDROCHLORIDE
     Dosage: 50 MG, 3X/DAY
  19. BIOTINE [Concomitant]
     Dosage: 1 DF, 1X/DAY (10000 MCG,  (AT NIGHT)
  20. ASPIRIN. [Concomitant]
     Active Substance: ASPIRIN
     Dosage: 81 MG, 1X/DAY (AT MORN)
  21. RELION/NOVOLIN [Concomitant]
     Dosage: 10 IU, 1X/DAY (NOON)
  22. RELION/NOVOLIN [Concomitant]
     Dosage: 30 IU, 1X/DAY (EVENING);
  23. LIPITOR [Concomitant]
     Active Substance: ATORVASTATIN CALCIUM
     Dosage: 80 MG, 1X/DAY (AT NIGHT)
  24. VITAMIN E [Concomitant]
     Active Substance: .ALPHA.-TOCOPHEROL
     Dosage: 1000 IU, 1X/DAY (AT NIGHT)
  25. NITRO [Concomitant]
     Active Substance: NITROGLYCERIN
     Dosage: 0.4 MG, AS NEEDED
  26. VITAMIN B COMPLEX [Concomitant]
     Active Substance: CYANOCOBALAMIN\DEXPANTHENOL\NIACINAMIDE\PYRIDOXINE HYDROCHLORIDE\RIBOFLAVIN 5^-PHOSPHATE SODIUM\THIAMINE HYDROCHLORIDE\VITAMIN B COMPLEX
     Dosage: 1 DF, 1X/DAY (AT NIGHT)
  27. VITAMIN D3 [Concomitant]
     Active Substance: CHOLECALCIFEROL
     Dosage: 2000 MG, 1X/DAY (AT NIGHT)

REACTIONS (4)
  - Intentional product misuse [Unknown]
  - Pain [Unknown]
  - Rib fracture [Unknown]
  - Sensitivity to weather change [Unknown]
